FAERS Safety Report 20796542 (Version 1)
Quarter: 2022Q2

REPORT INFORMATION
  Report Type: Spontaneous
  Country: US (occurrence: US)
  Receive Date: 20220506
  Receipt Date: 20220506
  Transmission Date: 20220721
  Serious: No
  Sender: FDA-Public Use
  Company Number: US-PFIZER INC-202200185461

PATIENT
  Age: 63 Year
  Sex: Female
  Weight: 102 kg

DRUGS (7)
  1. BOSULIF [Suspect]
     Active Substance: BOSUTINIB MONOHYDRATE
     Indication: Chronic myeloid leukaemia
     Dosage: 400 MG
  2. BOSULIF [Suspect]
     Active Substance: BOSUTINIB MONOHYDRATE
     Dosage: 100 MG
  3. BOSULIF [Suspect]
     Active Substance: BOSUTINIB MONOHYDRATE
     Dosage: 400 MG, 1X/DAY (ONE TABLET DAILY BY MOUTH)
     Route: 048
  4. OXYCODONE [Concomitant]
     Active Substance: OXYCODONE
     Indication: Piriformis syndrome
     Dosage: 10 MG, 3X/DAY(3 TIMES DAILY)
  5. QUETIAPINE [Concomitant]
     Active Substance: QUETIAPINE
     Indication: Insomnia
     Dosage: 200 MG, 1X/DAY (ONCE NIGHTLY)
  6. PAROXETINE [Concomitant]
     Active Substance: PAROXETINE
     Indication: Insomnia
     Dosage: 40 MG, 1X/DAY (ONCE NIGHTLY)
  7. TIZANIDINE [Concomitant]
     Active Substance: TIZANIDINE
     Indication: Muscle relaxant therapy
     Dosage: 4 MG, 2X/DAY (ONE TABLET MAYBE TWICE DAILY)

REACTIONS (3)
  - Product dose omission issue [Unknown]
  - Dry skin [Not Recovered/Not Resolved]
  - Vomiting [Unknown]
